APPROVED DRUG PRODUCT: DEXAMETHASONE SODIUM PHOSPHATE
Active Ingredient: DEXAMETHASONE SODIUM PHOSPHATE
Strength: EQ 4MG PHOSPHATE/ML
Dosage Form/Route: INJECTABLE;INJECTION
Application: A089169 | Product #001
Applicant: DR REDDYS LABORATORIES LTD
Approved: Apr 9, 1986 | RLD: No | RS: No | Type: DISCN